FAERS Safety Report 4557262-X (Version None)
Quarter: 2005Q1

REPORT INFORMATION
  Report Type: 
  Country: None (occurrence: None)
  Receive Date: 20050118
  Receipt Date: 20050106
  Transmission Date: 20050727
  Serious: Yes (Hospitalization, Other)
  Sender: FDA-Public Use
  Company Number: 200510055BCC

PATIENT
  Age: 44 Year
  Sex: Male
  Weight: 88.4514 kg

DRUGS (8)
  1. ACETYLSALICYLIC ACID SRT [Suspect]
     Indication: BACK PAIN
     Dosage: 2.6-3.25 G, QD
     Dates: start: 20041101, end: 20041202
  2. PEGASYS (PEGYLATED INTERFERON ALFA-2A) (PEGINTEFERON ALFA-2A) [Suspect]
     Indication: HEPATITIS C
     Dosage: 180 UG, QW, SUBCUTANEOUS
     Route: 058
     Dates: start: 20040920, end: 20041130
  3. COPEGUS [Suspect]
     Indication: HEPATITIS C
     Dosage: 1200 MG, QD
     Dates: start: 20040920, end: 20041130
  4. LISINOPRIL AND HYDROCHLOROTHIAZIDE [Concomitant]
  5. TOPROL-XL [Concomitant]
  6. NORVASC [Concomitant]
  7. WELCHOL [Concomitant]
  8. OXYCONTIN [Concomitant]

REACTIONS (17)
  - ACUTE RESPIRATORY FAILURE [None]
  - ALKALOSIS [None]
  - ANION GAP INCREASED [None]
  - ANXIETY [None]
  - BLOOD CREATINE PHOSPHOKINASE INCREASED [None]
  - DRUG TOXICITY [None]
  - ELECTROCARDIOGRAM T WAVE ABNORMAL [None]
  - FATIGUE [None]
  - HAEMODIALYSIS [None]
  - HEPATIC FAILURE [None]
  - INTERSTITIAL LUNG DISEASE [None]
  - OVERDOSE [None]
  - PNEUMONIA MYCOPLASMAL [None]
  - PROTEIN TOTAL INCREASED [None]
  - PROTHROMBIN TIME PROLONGED [None]
  - THERAPEUTIC AGENT TOXICITY [None]
  - VOMITING [None]
